FAERS Safety Report 13298316 (Version 1)
Quarter: 2017Q1

REPORT INFORMATION
  Report Type: Spontaneous
  Country: US (occurrence: US)
  Receive Date: 20170306
  Receipt Date: 20170306
  Transmission Date: 20170428
  Serious: Yes (Other)
  Sender: FDA-Public Use
  Company Number: US-SA-2017SA026833

PATIENT
  Sex: Female

DRUGS (1)
  1. LEMTRADA [Suspect]
     Active Substance: ALEMTUZUMAB
     Route: 041

REACTIONS (7)
  - Vein disorder [Unknown]
  - Headache [Unknown]
  - Seizure [Unknown]
  - Limb discomfort [Unknown]
  - Flushing [Unknown]
  - Influenza like illness [Unknown]
  - Oropharyngeal pain [Unknown]
